FAERS Safety Report 24449795 (Version 2)
Quarter: 2024Q4

REPORT INFORMATION
  Report Type: Other
  Country: ES (occurrence: ES)
  Receive Date: 20241017
  Receipt Date: 20241023
  Transmission Date: 20250114
  Serious: Yes (Hospitalization, Other)
  Sender: MACLEODS
  Company Number: None

PATIENT

DRUGS (17)
  1. LEVOFLOXACIN [Suspect]
     Active Substance: LEVOFLOXACIN
     Indication: Staphylococcal infection
     Route: 048
  2. LEVOFLOXACIN [Suspect]
     Active Substance: LEVOFLOXACIN
     Indication: Pseudomonas infection
     Route: 042
  3. LEVOFLOXACIN [Suspect]
     Active Substance: LEVOFLOXACIN
     Indication: Osteomyelitis
     Route: 042
  4. LEVOFLOXACIN [Suspect]
     Active Substance: LEVOFLOXACIN
     Indication: Osteomyelitis
     Route: 042
  5. LEVOFLOXACIN [Suspect]
     Active Substance: LEVOFLOXACIN
     Route: 042
  6. LEVOFLOXACIN [Suspect]
     Active Substance: LEVOFLOXACIN
     Route: 042
  7. LEVOFLOXACIN [Suspect]
     Active Substance: LEVOFLOXACIN
     Route: 042
  8. LEVOFLOXACIN [Suspect]
     Active Substance: LEVOFLOXACIN
     Route: 042
  9. LEVOFLOXACIN [Suspect]
     Active Substance: LEVOFLOXACIN
     Route: 042
  10. LEVOFLOXACIN [Suspect]
     Active Substance: LEVOFLOXACIN
     Route: 042
  11. LEVOFLOXACIN [Suspect]
     Active Substance: LEVOFLOXACIN
     Route: 048
  12. LEVOFLOXACIN [Suspect]
     Active Substance: LEVOFLOXACIN
     Route: 042
  13. AMIKACIN [Suspect]
     Active Substance: AMIKACIN
     Indication: Pseudomonas infection
     Route: 065
  14. AMIKACIN [Suspect]
     Active Substance: AMIKACIN
     Indication: Staphylococcal infection
  15. CEFTAZIDIME [Suspect]
     Active Substance: CEFTAZIDIME
     Indication: Staphylococcal infection
     Route: 065
  16. CEFTAZIDIME [Suspect]
     Active Substance: CEFTAZIDIME
     Indication: Pseudomonas infection
     Route: 065
  17. CEFAZOLIN [Concomitant]
     Active Substance: CEFAZOLIN
     Indication: Product used for unknown indication
     Route: 065

REACTIONS (2)
  - Toxic skin eruption [Recovering/Resolving]
  - Condition aggravated [Recovering/Resolving]
